FAERS Safety Report 18931976 (Version 1)
Quarter: 2021Q1

REPORT INFORMATION
  Report Type: Spontaneous
  Country: US (occurrence: US)
  Receive Date: 20210223
  Receipt Date: 20210223
  Transmission Date: 20210420
  Serious: No
  Sender: FDA-Public Use
  Company Number: US-ROCHE-2720382

PATIENT
  Age: 9 Year
  Sex: Male

DRUGS (1)
  1. EVRYSDI [Suspect]
     Active Substance: RISDIPLAM
     Indication: SPINAL MUSCULAR ATROPHY
     Route: 048

REACTIONS (7)
  - Heart rate increased [Unknown]
  - Faeces soft [Unknown]
  - Abnormal faeces [Unknown]
  - Pulmonary congestion [Unknown]
  - Pain [Unknown]
  - Fatigue [Unknown]
  - Frequent bowel movements [Unknown]

NARRATIVE: CASE EVENT DATE: 20201117
